FAERS Safety Report 11798222 (Version 2)
Quarter: 2016Q1

REPORT INFORMATION
  Report Type: Spontaneous
  Country: BR (occurrence: BR)
  Receive Date: 20151203
  Receipt Date: 20160218
  Transmission Date: 20160525
  Serious: Yes (Death, Hospitalization)
  Sender: FDA-Public Use
  Company Number: BR-ELI_LILLY_AND_COMPANY-BR201511009296

PATIENT
  Sex: Female
  Weight: 73 kg

DRUGS (4)
  1. GEMZAR [Suspect]
     Active Substance: GEMCITABINE HYDROCHLORIDE
     Indication: LUNG NEOPLASM MALIGNANT
     Dosage: 1861 MG, CYCLICAL
     Route: 042
     Dates: start: 20150714
  2. GEMZAR [Suspect]
     Active Substance: GEMCITABINE HYDROCHLORIDE
     Indication: BRONCHIAL CARCINOMA
     Dosage: 1861 MG, CYCLICAL
     Route: 042
     Dates: start: 20150714
  3. FAULDCARBO [Concomitant]
     Active Substance: CARBOPLATIN
     Indication: BRONCHIAL CARCINOMA
  4. FAULDCARBO [Concomitant]
     Active Substance: CARBOPLATIN
     Indication: LUNG NEOPLASM MALIGNANT
     Dosage: 287.5 MG, CYCLICAL
     Route: 042
     Dates: start: 20150714

REACTIONS (2)
  - Febrile neutropenia [Fatal]
  - Sepsis [Fatal]
